FAERS Safety Report 20048137 (Version 9)
Quarter: 2023Q1

REPORT INFORMATION
  Report Type: Report from Study
  Country: US (occurrence: US)
  Receive Date: 20211109
  Receipt Date: 20230111
  Transmission Date: 20230418
  Serious: Yes (Life-Threatening, Other)
  Sender: FDA-Public Use
  Company Number: US-002147023-NVSC2021US255348

PATIENT
  Age: 33 Year
  Sex: Female

DRUGS (2)
  1. KESIMPTA [Suspect]
     Active Substance: OFATUMUMAB
     Indication: Multiple sclerosis
     Dosage: 0.04 ML, QMO
     Route: 058
     Dates: start: 20211015
  2. KESIMPTA [Suspect]
     Active Substance: OFATUMUMAB
     Dosage: 20 MG, QW
     Route: 058
     Dates: start: 20211101, end: 202209

REACTIONS (10)
  - Near death experience [Unknown]
  - Sepsis [Unknown]
  - Pain [Recovered/Resolved]
  - Dysphonia [Unknown]
  - Bacterial infection [Unknown]
  - Pyrexia [Recovered/Resolved]
  - Chills [Recovered/Resolved]
  - Back pain [Recovered/Resolved]
  - Respiratory syncytial virus infection [Unknown]
  - Benign breast neoplasm [Unknown]

NARRATIVE: CASE EVENT DATE: 20211101
